FAERS Safety Report 9943192 (Version 2)
Quarter: 2014Q1

REPORT INFORMATION
  Report Type: Spontaneous
  Country: FR (occurrence: FR)
  Receive Date: 20140303
  Receipt Date: 20140303
  Transmission Date: 20141002
  Serious: Yes (Congenital Anomaly)
  Sender: FDA-Public Use
  Company Number: FR-GLAXOSMITHKLINE-B0548322B

PATIENT
  Sex: Female

DRUGS (3)
  1. LAMICTAL [Suspect]
     Indication: EPILEPSY
     Route: 064
  2. SPECIAFOLDINE [Concomitant]
     Route: 064
     Dates: start: 200709
  3. VITAMIN D [Concomitant]
     Dosage: 3DROP PER DAY
     Route: 064

REACTIONS (3)
  - Cleft lip [Recovered/Resolved]
  - Foetal exposure during pregnancy [Unknown]
  - Exposure during breast feeding [Unknown]
